FAERS Safety Report 8415065-X (Version None)
Quarter: 2012Q2

REPORT INFORMATION
  Report Type: 
  Country: None (occurrence: None)
  Receive Date: 20120606
  Receipt Date: 20120529
  Transmission Date: 20120825
  Serious: Yes (Hospitalization, Other)
  Sender: FDA-Public Use
  Company Number: US-JNJFOC-20120520683

PATIENT
  Sex: Female
  Weight: 68.04 kg

DRUGS (3)
  1. DURAGESIC-100 [Suspect]
     Route: 062
     Dates: end: 20120101
  2. DURAGESIC-100 [Suspect]
     Dosage: 100 UG/HR+25 UG/HR
     Route: 062
     Dates: start: 20120101
  3. DURAGESIC-100 [Suspect]
     Indication: FIBROMYALGIA
     Route: 062

REACTIONS (15)
  - COMPLEX REGIONAL PAIN SYNDROME [None]
  - HERNIA [None]
  - PAIN [None]
  - DRUG ADMINISTERED AT INAPPROPRIATE SITE [None]
  - ROAD TRAFFIC ACCIDENT [None]
  - NECK INJURY [None]
  - THERAPEUTIC RESPONSE DECREASED [None]
  - FIBROMYALGIA [None]
  - BEDRIDDEN [None]
  - NECROSIS [None]
  - WEIGHT INCREASED [None]
  - MASS [None]
  - ADVERSE EVENT [None]
  - VOMITING [None]
  - PRODUCT QUALITY ISSUE [None]
